FAERS Safety Report 7357972-5 (Version None)
Quarter: 2011Q1

REPORT INFORMATION
  Report Type: 
  Country: None (occurrence: None)
  Receive Date: 20110317
  Receipt Date: 20110308
  Transmission Date: 20110831
  Serious: Yes (Hospitalization)
  Sender: FDA-Public Use
  Company Number: CA-SANOFI-AVENTIS-2011SA010656

PATIENT
  Age: 78 Year
  Sex: Female
  Weight: 76 kg

DRUGS (20)
  1. SYNTHROID [Concomitant]
  2. LASIX [Concomitant]
  3. VENTOLIN [Concomitant]
  4. PLAVIX [Suspect]
     Route: 048
     Dates: start: 20110119, end: 20110125
  5. TICLID [Suspect]
     Route: 065
     Dates: start: 20110126, end: 20110203
  6. RESTORIL [Concomitant]
  7. IRON [Concomitant]
  8. COLACE [Concomitant]
  9. ATIVAN [Concomitant]
  10. TYLENOL-500 [Concomitant]
  11. VITAMIN D [Concomitant]
  12. PLAVIX [Suspect]
     Route: 048
     Dates: start: 20101001, end: 20101223
  13. COLCHICINE [Concomitant]
     Dates: start: 20110101
  14. ASPIRIN [Concomitant]
  15. CALCIUM [Concomitant]
  16. LIPITOR [Concomitant]
  17. AMLODIPINE BESILATE [Concomitant]
  18. LOPRESSOR [Concomitant]
  19. IMDUR [Concomitant]
  20. ALLOPURINOL [Suspect]
     Route: 065
     Dates: start: 20110101, end: 20110201

REACTIONS (6)
  - RENAL FAILURE ACUTE [None]
  - DRUG RASH WITH EOSINOPHILIA AND SYSTEMIC SYMPTOMS [None]
  - PYREXIA [None]
  - RASH [None]
  - EXFOLIATIVE RASH [None]
  - HEPATIC ENZYME INCREASED [None]
